FAERS Safety Report 5527976-3 (Version None)
Quarter: 2007Q4

REPORT INFORMATION
  Report Type: 
  Country: None (occurrence: None)
  Receive Date: 20071128
  Receipt Date: 20071115
  Transmission Date: 20080405
  Serious: Yes (Other)
  Sender: FDA-Public Use
  Company Number: JP-BRACCO-BEI-007725

PATIENT
  Age: 64 Year
  Sex: Female
  Weight: 52.4 kg

DRUGS (10)
  1. PROHANCE [Suspect]
     Indication: NUCLEAR MAGNETIC RESONANCE IMAGING BRAIN
     Route: 042
     Dates: start: 20071019, end: 20071019
  2. NORVASC [Concomitant]
     Route: 048
  3. DIOVAN                             /01319601/ [Concomitant]
     Route: 048
  4. RABEPRAZOLE SODIUM [Concomitant]
     Route: 048
  5. YODEL [Concomitant]
     Route: 048
  6. GASTER [Concomitant]
     Route: 048
  7. BALANCE [Concomitant]
     Route: 050
  8. IRINATOLON [Concomitant]
     Route: 050
  9. PREDONINE [Concomitant]
     Route: 048
  10. BUFFERIN [Concomitant]
     Route: 048

REACTIONS (8)
  - ACUTE MYOCARDIAL INFARCTION [None]
  - BLOOD PRESSURE INCREASED [None]
  - CONTRAST MEDIA REACTION [None]
  - DEPRESSED LEVEL OF CONSCIOUSNESS [None]
  - HEART RATE DECREASED [None]
  - LOSS OF CONSCIOUSNESS [None]
  - SOMNOLENCE [None]
  - YAWNING [None]
